FAERS Safety Report 8193448-3 (Version None)
Quarter: 2012Q1

REPORT INFORMATION
  Report Type: 
  Country: None (occurrence: None)
  Receive Date: 20120308
  Receipt Date: 20120229
  Transmission Date: 20120608
  Serious: Yes (Other)
  Sender: FDA-Public Use
  Company Number: NL-TEVA-326527ISR

PATIENT
  Sex: Female

DRUGS (1)
  1. PAROXETINE [Suspect]
     Indication: DEPRESSION
     Dosage: 10 MILLIGRAM;

REACTIONS (7)
  - SOCIAL AVOIDANT BEHAVIOUR [None]
  - HOMICIDAL IDEATION [None]
  - IMPULSE-CONTROL DISORDER [None]
  - IRRITABILITY [None]
  - MALAISE [None]
  - DEPRESSED MOOD [None]
  - ANGER [None]
